FAERS Safety Report 14496693 (Version 1)
Quarter: 2018Q1

REPORT INFORMATION
  Report Type: Spontaneous
  Country: US (occurrence: US)
  Receive Date: 20180206
  Receipt Date: 20180206
  Transmission Date: 20180509
  Serious: Yes (Disabling)
  Sender: FDA-Public Use
  Company Number: None

PATIENT
  Age: 86 Year
  Sex: Female
  Weight: 68.04 kg

DRUGS (1)
  1. GABAPENTIN 100MG CAP [Suspect]
     Active Substance: GABAPENTIN
     Indication: NEUROPATHY PERIPHERAL
     Dosage: 1-3X DAILY  AM NOON BEDTIME 3 X DAILY  BY MOUTH W/GLASS OF WATER
     Route: 048
     Dates: start: 20170807

REACTIONS (8)
  - Hypersomnia [None]
  - Somnolence [None]
  - Diplopia [None]
  - Coordination abnormal [None]
  - Fatigue [None]
  - Eye movement disorder [None]
  - Speech disorder [None]
  - Peripheral swelling [None]

NARRATIVE: CASE EVENT DATE: 20170807
